FAERS Safety Report 6582520-7 (Version None)
Quarter: 2010Q1

REPORT INFORMATION
  Report Type: 
  Country: None (occurrence: None)
  Receive Date: 20100212
  Receipt Date: 20100212
  Transmission Date: 20100710
  Serious: No
  Sender: FDA-Public Use
  Company Number: None

PATIENT
  Age: 85 Year
  Sex: Male
  Weight: 75.8 kg

DRUGS (1)
  1. METFORMIN HCL [Suspect]
     Indication: LACTIC ACIDOSIS
     Dosage: 1000 MG BID PO
     Route: 048
     Dates: start: 20020201, end: 20100122

REACTIONS (2)
  - GENERAL PHYSICAL HEALTH DETERIORATION [None]
  - LACTIC ACIDOSIS [None]
